FAERS Safety Report 9790244 (Version 1)
Quarter: 2013Q4

REPORT INFORMATION
  Report Type: Spontaneous
  Country: SG (occurrence: SG)
  Receive Date: 20131231
  Receipt Date: 20131231
  Transmission Date: 20140711
  Serious: Yes (Hospitalization)
  Sender: FDA-Public Use
  Company Number: SG-BAYER-2013-158027

PATIENT
  Sex: 0

DRUGS (1)
  1. CIPROFLOXACIN [Suspect]

REACTIONS (4)
  - Face oedema [Unknown]
  - Mucosal ulceration [Unknown]
  - Periorbital oedema [Unknown]
  - Angioedema [Unknown]
